FAERS Safety Report 14355338 (Version 1)
Quarter: 2018Q1

REPORT INFORMATION
  Report Type: Spontaneous
  Country: GB (occurrence: GB)
  Receive Date: 20180104
  Receipt Date: 20180104
  Transmission Date: 20180509
  Serious: Yes (Other)
  Sender: FDA-Public Use
  Company Number: None

PATIENT
  Age: 43 Year
  Sex: Female
  Weight: 53.55 kg

DRUGS (1)
  1. BETNOVATE [Suspect]
     Active Substance: BETAMETHASONE
     Route: 061

REACTIONS (5)
  - Skin disorder [None]
  - Skin burning sensation [None]
  - Pruritus [None]
  - Rebound effect [None]
  - Secretion discharge [None]

NARRATIVE: CASE EVENT DATE: 20170401
